FAERS Safety Report 4378889-4 (Version None)
Quarter: 2004Q2

REPORT INFORMATION
  Report Type: 
  Country: None (occurrence: None)
  Receive Date: 20040610
  Receipt Date: 20040528
  Transmission Date: 20050107
  Serious: Yes (Death, Hospitalization)
  Sender: FDA-Public Use
  Company Number: CA-JNJFOC-20030707276

PATIENT
  Sex: Female

DRUGS (5)
  1. DURAGESIC [Suspect]
     Indication: PAIN
     Dosage: TRANSDERMAL
     Route: 062
     Dates: start: 20030201, end: 20030801
  2. DURAGESIC [Suspect]
     Indication: PAIN
     Dosage: TRANSDERMAL
     Route: 062
     Dates: start: 20030801
  3. LOSEC (OMEPRAZOLE) [Concomitant]
  4. THYROID MEDICATION (THYROID HORMONES) [Concomitant]
  5. ANTI-INFLAMMATORY MEDICATION (ANTIINFLAMMATORY/ANTIRHEUMATIC PRODUCTS) [Concomitant]

REACTIONS (2)
  - DELUSION [None]
  - MYOCARDIAL INFARCTION [None]
